FAERS Safety Report 4668201-5 (Version None)
Quarter: 2005Q2

REPORT INFORMATION
  Report Type: 
  Country: None (occurrence: None)
  Receive Date: 20050523
  Receipt Date: 20041214
  Transmission Date: 20051028
  Serious: Yes (Other)
  Sender: FDA-Public Use
  Company Number: PHEH2004US13345

PATIENT
  Sex: 0

DRUGS (3)
  1. PAMIDRONATE DISODIUM [Suspect]
     Indication: MULTIPLE MYELOMA
     Dates: start: 20000101, end: 20020101
  2. PAMIDRONATE DISODIUM [Suspect]
     Dates: start: 20040101
  3. ZOMETA [Suspect]
     Indication: MULTIPLE MYELOMA
     Dates: start: 20020101

REACTIONS (1)
  - OSTEONECROSIS [None]
